FAERS Safety Report 13300254 (Version 1)
Quarter: 2017Q1

REPORT INFORMATION
  Report Type: Spontaneous
  Country: FR (occurrence: FR)
  Receive Date: 20170307
  Receipt Date: 20170307
  Transmission Date: 20170428
  Serious: Yes (Hospitalization, Other)
  Sender: FDA-Public Use
  Company Number: FR-BAXTER-2017BAX008856

PATIENT
  Age: 26 Year
  Sex: Female

DRUGS (20)
  1. VANCOMYCIN MYLAN [Suspect]
     Active Substance: VANCOMYCIN
     Dosage: ALONG WITH MEROPENEM
     Route: 065
     Dates: start: 20170116, end: 20170122
  2. DECAPEPTYL [Concomitant]
     Active Substance: TRIPTORELIN
     Indication: PRODUCT USED FOR UNKNOWN INDICATION
     Route: 065
  3. FOLIC ACID CCD [Concomitant]
     Indication: PRODUCT USED FOR UNKNOWN INDICATION
     Route: 065
  4. ENDOXAN 1000 MG, POUDRE POUR SOLUTION INJECTABLE [Suspect]
     Active Substance: CYCLOPHOSPHAMIDE
     Dosage: SECOND CYCLE
     Route: 065
     Dates: start: 20170109, end: 20170109
  5. TIORFAN [Concomitant]
     Active Substance: RACECADOTRIL
     Indication: PRODUCT USED FOR UNKNOWN INDICATION
     Dosage: IF NEEDED
     Route: 065
  6. VANCOMYCIN MYLAN [Suspect]
     Active Substance: VANCOMYCIN
     Indication: SEPTIC SHOCK
     Dosage: ALONG WITH CEFOTAXIME, AMIKACIN
     Route: 065
     Dates: start: 20170110
  7. VANCOMYCIN MYLAN [Suspect]
     Active Substance: VANCOMYCIN
     Dosage: ALONG WITH TAZOCILLIN
     Route: 065
     Dates: start: 20170111
  8. TAZOCILLINE [Suspect]
     Active Substance: PIPERACILLIN SODIUM\TAZOBACTAM SODIUM
     Indication: SEPTIC SHOCK
     Route: 065
     Dates: start: 20170111, end: 20170116
  9. ENDOXAN 1000 MG, POUDRE POUR SOLUTION INJECTABLE [Suspect]
     Active Substance: CYCLOPHOSPHAMIDE
     Indication: MIXED CONNECTIVE TISSUE DISEASE
     Dosage: OCCASIONALLY
     Route: 065
     Dates: start: 2010
  10. ENDOXAN 1000 MG, POUDRE POUR SOLUTION INJECTABLE [Suspect]
     Active Substance: CYCLOPHOSPHAMIDE
     Dosage: FIRST CYCLE
     Route: 065
     Dates: start: 20161219, end: 20161219
  11. WELLVONE [Suspect]
     Active Substance: ATOVAQUONE
     Indication: PRODUCT USED FOR UNKNOWN INDICATION
     Route: 065
     Dates: start: 20170119, end: 20170122
  12. DIFFU K [Concomitant]
     Active Substance: POTASSIUM CHLORIDE
     Indication: PRODUCT USED FOR UNKNOWN INDICATION
     Route: 065
  13. PARACETAMOL [Concomitant]
     Active Substance: ACETAMINOPHEN
     Indication: PRODUCT USED FOR UNKNOWN INDICATION
     Dosage: ONCE TO 4 TIMES DAILY, IF NEEDED
     Route: 065
  14. BACTRIM [Concomitant]
     Active Substance: SULFAMETHOXAZOLE\TRIMETHOPRIM
     Indication: PRODUCT USED FOR UNKNOWN INDICATION
     Route: 065
  15. ENDOXAN 1000 MG, POUDRE POUR SOLUTION INJECTABLE [Suspect]
     Active Substance: CYCLOPHOSPHAMIDE
     Dosage: OCCASIONALLY
     Route: 065
     Dates: start: 201608
  16. MEROPENEM KABI [Suspect]
     Active Substance: MEROPENEM
     Indication: SEPTIC SHOCK
     Route: 065
     Dates: start: 20170116, end: 20170122
  17. PRIMPERAN [Concomitant]
     Active Substance: METOCLOPRAMIDE HYDROCHLORIDE
     Indication: NAUSEA
     Dosage: SCORED TABLET, 30 MINS BEFORE MEAL
     Route: 065
  18. GAVISCON [Concomitant]
     Active Substance: ALUMINUM HYDROXIDE\MAGNESIUM CARBONATE
     Indication: PRODUCT USED FOR UNKNOWN INDICATION
     Dosage: THRICE DAILY IF NEEDED
     Route: 065
  19. CEFOTAXIME SODIUM [Suspect]
     Active Substance: CEFOTAXIME SODIUM
     Indication: SEPTIC SHOCK
     Route: 065
     Dates: start: 20170110, end: 20170111
  20. AMIKACIN [Suspect]
     Active Substance: AMIKACIN
     Indication: SEPTIC SHOCK
     Route: 065
     Dates: start: 20170110, end: 20170111

REACTIONS (9)
  - Pulmonary arterial hypertension [Unknown]
  - Thrombocytopenia [Unknown]
  - Septic shock [Unknown]
  - Mixed connective tissue disease [Unknown]
  - Interstitial lung disease [Unknown]
  - Pancytopenia [Recovering/Resolving]
  - Staphylococcal sepsis [Unknown]
  - Oesophageal candidiasis [Unknown]
  - Hypersplenism [Unknown]

NARRATIVE: CASE EVENT DATE: 2010
